FAERS Safety Report 16645556 (Version 1)
Quarter: 2019Q3

REPORT INFORMATION
  Report Type: Spontaneous
  Country: US (occurrence: US)
  Receive Date: 20190730
  Receipt Date: 20190730
  Transmission Date: 20191004
  Serious: No
  Sender: FDA-Public Use
  Company Number: US-CELGENEUS-USA-20190708690

PATIENT
  Age: 65 Year
  Sex: Male
  Weight: 78.84 kg

DRUGS (1)
  1. REVLIMID [Suspect]
     Active Substance: LENALIDOMIDE
     Indication: PLASMA CELL MYELOMA
     Dosage: 25 MILLIGRAM
     Route: 048
     Dates: start: 20190702

REACTIONS (3)
  - Hypoaesthesia [Unknown]
  - Constipation [Unknown]
  - Feeling cold [Unknown]

NARRATIVE: CASE EVENT DATE: 20190720
